FAERS Safety Report 17556512 (Version 1)
Quarter: 2020Q1

REPORT INFORMATION
  Report Type: Spontaneous
  Country: ZA (occurrence: ZA)
  Receive Date: 20200318
  Receipt Date: 20200318
  Transmission Date: 20200409
  Serious: Yes (Other)
  Sender: FDA-Public Use
  Company Number: NVSC2020ZA074944

PATIENT
  Age: 44 Year
  Sex: Female

DRUGS (4)
  1. ZOMABON [Concomitant]
     Indication: PRODUCT USED FOR UNKNOWN INDICATION
     Dosage: UNK
     Route: 065
  2. EXEMESTANE. [Suspect]
     Active Substance: EXEMESTANE
     Indication: BREAST CANCER
     Dosage: 10 MG, CYCLIC (FIRST CYCLE)
     Route: 065
     Dates: start: 201912
  3. AFINITOR [Suspect]
     Active Substance: EVEROLIMUS
     Dosage: 5 MG, CYCLIC (CYCLE 2 AND 3)
     Route: 065
     Dates: start: 202001
  4. AFINITOR [Suspect]
     Active Substance: EVEROLIMUS
     Dosage: 10 MG, CYCLIC (FIRST CYCLE)
     Route: 065
     Dates: start: 201912, end: 202001

REACTIONS (1)
  - Osteonecrosis of jaw [Unknown]
